FAERS Safety Report 18791829 (Version 2)
Quarter: 2021Q3

REPORT INFORMATION
  Report Type: Spontaneous
  Country: CN (occurrence: CN)
  Receive Date: 20210127
  Receipt Date: 20210916
  Transmission Date: 20211014
  Serious: Yes (Other)
  Sender: FDA-Public Use
  Company Number: CN-BEH-2021127686

PATIENT
  Age: 28 Year
  Sex: Female

DRUGS (6)
  1. ALBUMIN HUMAN (INN) [Suspect]
     Active Substance: ALBUMIN HUMAN
     Indication: PRE-ECLAMPSIA
     Dosage: 10 GRAM
     Route: 042
  2. METHYLPREDNISOLONE. [Suspect]
     Active Substance: METHYLPREDNISOLONE
     Indication: SYSTEMIC LUPUS ERYTHEMATOSUS
  3. GAMMA GLOBULIN [Suspect]
     Active Substance: IMMUNE GLOBULIN NOS
     Indication: SYSTEMIC LUPUS ERYTHEMATOSUS
  4. ALBUMIN HUMAN (INN) [Suspect]
     Active Substance: ALBUMIN HUMAN
     Indication: SYSTEMIC LUPUS ERYTHEMATOSUS
  5. METHYLPREDNISOLONE. [Suspect]
     Active Substance: METHYLPREDNISOLONE
     Indication: PRE-ECLAMPSIA
     Dosage: 500 MILLIGRAM, QD
     Route: 042
  6. GAMMA GLOBULIN [Suspect]
     Active Substance: IMMUNE GLOBULIN NOS
     Indication: PRE-ECLAMPSIA
     Dosage: 20 GRAM, QD
     Route: 042

REACTIONS (4)
  - Stillbirth [Not Recovered/Not Resolved]
  - Maternal exposure during pregnancy [Not Recovered/Not Resolved]
  - Off label use [Unknown]
  - No adverse event [Unknown]
